FAERS Safety Report 25412723 (Version 2)
Quarter: 2025Q3

REPORT INFORMATION
  Report Type: Report from Study
  Country: US (occurrence: US)
  Receive Date: 20250609
  Receipt Date: 20250710
  Transmission Date: 20251021
  Serious: Yes (Other)
  Sender: MALLINCKRODT
  Company Number: US-MALLINCKRODT-MNK202503303

PATIENT
  Sex: Female

DRUGS (5)
  1. CORTICOTROPIN [Suspect]
     Active Substance: CORTICOTROPIN
     Indication: Scleritis
  2. CORTICOTROPIN [Suspect]
     Active Substance: CORTICOTROPIN
     Indication: Rheumatoid arthritis
  3. PREDNISONE [Concomitant]
     Active Substance: PREDNISONE
  4. PREDNISONE [Concomitant]
     Active Substance: PREDNISONE
  5. RITUXAN [Concomitant]
     Active Substance: RITUXIMAB

REACTIONS (5)
  - Diabetes mellitus [Unknown]
  - Rheumatoid arthritis [Unknown]
  - Nausea [Not Recovered/Not Resolved]
  - Weight increased [Unknown]
  - Therapeutic response shortened [Unknown]

NARRATIVE: CASE EVENT DATE: 20250101
